FAERS Safety Report 24670175 (Version 1)
Quarter: 2024Q4

REPORT INFORMATION
  Report Type: Spontaneous
  Country: US (occurrence: None)
  Receive Date: 20241126
  Receipt Date: 20241126
  Transmission Date: 20250115
  Serious: No
  Sender: Public
  Company Number: None

PATIENT
  Sex: 0

DRUGS (2)
  1. METFORMIN [Suspect]
     Active Substance: METFORMIN HYDROCHLORIDE
  2. SODIUM [Suspect]
     Active Substance: SODIUM

REACTIONS (3)
  - Drug ineffective [None]
  - Fatigue [None]
  - Asthenia [None]
